FAERS Safety Report 5335831-7 (Version None)
Quarter: 2007Q1

REPORT INFORMATION
  Report Type: 
  Country: None (occurrence: None)
  Receive Date: 20070320
  Receipt Date: 20060306
  Transmission Date: 20070707
  Serious: Yes (Other)
  Sender: FDA-Public Use
  Company Number: 144650USA

PATIENT
  Age: 25 Year
  Sex: Male
  Weight: 100.5 kg

DRUGS (4)
  1. ETOPOSIDE [Suspect]
     Indication: TESTIS CANCER
     Dosage: 500 MG DAILY X 5 DAYS, REPEATS CYCLE EVERY THREE WEEKS (217 MG), INTRAVENOUS (NOT OTHERWISE SPECIFIE
     Route: 042
     Dates: start: 20060206
  2. CISPLATIN [Suspect]
     Indication: TESTIS CANCER
     Dosage: DAILY FOR 5 DAYS PRIOR TO ETOPOSIDE DOSE (48.4 MG,ONCE A DAY), INTRAVENOUS (NOT OTHERWISE SPECIFIED)
     Route: 042
     Dates: start: 20060101
  3. CHOLESTEROL MEDICATION [Concomitant]
  4. VICODIN [Concomitant]

REACTIONS (2)
  - CHEST DISCOMFORT [None]
  - DYSPNOEA [None]
